FAERS Safety Report 18901398 (Version 1)
Quarter: 2021Q1

REPORT INFORMATION
  Report Type: Report from Study
  Country: US (occurrence: US)
  Receive Date: 20210216
  Receipt Date: 20210216
  Transmission Date: 20210420
  Serious: Yes (Other)
  Sender: FDA-Public Use
  Company Number: US-JNJFOC-20210215787

PATIENT
  Sex: Female
  Weight: 83.2 kg

DRUGS (2)
  1. TADALAFIL. [Concomitant]
     Active Substance: TADALAFIL
  2. EPOPROSTENOL SODIUM. [Suspect]
     Active Substance: EPOPROSTENOL SODIUM
     Indication: PULMONARY ARTERIAL HYPERTENSION
     Dosage: VELETRI 1.5 MG VIAL INTRAVENOUS CONTINUOUS
     Route: 042

REACTIONS (6)
  - Flushing [Unknown]
  - Pain in jaw [Unknown]
  - Rash [Unknown]
  - Postoperative wound infection [Unknown]
  - Diarrhoea [Unknown]
  - Headache [Unknown]
